FAERS Safety Report 14870725 (Version 2)
Quarter: 2018Q2

REPORT INFORMATION
  Report Type: Spontaneous
  Country: AR (occurrence: AR)
  Receive Date: 20180509
  Receipt Date: 20180619
  Transmission Date: 20180711
  Serious: Yes (Other)
  Sender: FDA-Public Use
  Company Number: AR-UCBSA-2018017248

PATIENT
  Age: 40 Year
  Sex: Female

DRUGS (5)
  1. KEPPRA [Suspect]
     Active Substance: LEVETIRACETAM
     Dosage: 1500 MG, ONCE DAILY (QD)
  2. KEPPRA [Suspect]
     Active Substance: LEVETIRACETAM
     Dosage: 500 MG, 2X/DAY (BID)
  3. ESTRADIOL. [Concomitant]
     Active Substance: ESTRADIOL
     Indication: PRODUCT USED FOR UNKNOWN INDICATION
     Dosage: UNK
  4. KEPPRA [Suspect]
     Active Substance: LEVETIRACETAM
     Indication: ILL-DEFINED DISORDER
     Dosage: 2500 MG
  5. KEPPRA [Suspect]
     Active Substance: LEVETIRACETAM
     Dosage: 2500 MG/DAY

REACTIONS (4)
  - Exposure during pregnancy [Unknown]
  - Somnolence [Unknown]
  - Myoclonus [Unknown]
  - Off label use [Unknown]

NARRATIVE: CASE EVENT DATE: 201708
